FAERS Safety Report 19434693 (Version 1)
Quarter: 2021Q2

REPORT INFORMATION
  Report Type: Spontaneous
  Country: US (occurrence: US)
  Receive Date: 20210617
  Receipt Date: 20210617
  Transmission Date: 20210717
  Serious: No
  Sender: FDA-Public Use
  Company Number: US-ROCHE-2683737

PATIENT
  Sex: Male

DRUGS (10)
  1. AMLODIPINE BESYLATE. [Concomitant]
     Active Substance: AMLODIPINE BESYLATE
  2. ACTEMRA [Suspect]
     Active Substance: TOCILIZUMAB
     Indication: RHEUMATOID ARTHRITIS
     Dosage: DATE OF THERAPY : COUPLE OF MONTHS AGO? PRESENT; DIRECTIONS: INJECT 162 MG 0.9 ML?SUBCUTANEOUSLY ONC
     Route: 058
  3. KEYTRUDA [Suspect]
     Active Substance: PEMBROLIZUMAB
     Indication: PRODUCT USED FOR UNKNOWN INDICATION
     Route: 065
  4. ACTEMRA [Suspect]
     Active Substance: TOCILIZUMAB
  5. ALENDRONATE SODIUM. [Concomitant]
     Active Substance: ALENDRONATE SODIUM
  6. LISINOPRIL. [Concomitant]
     Active Substance: LISINOPRIL
  7. METOPROLOL SUCCINATE. [Concomitant]
     Active Substance: METOPROLOL SUCCINATE
  8. VALACYCLOVIR HCL [Concomitant]
     Active Substance: VALACYCLOVIR HYDROCHLORIDE
  9. XARELTO [Concomitant]
     Active Substance: RIVAROXABAN
  10. ATORVASTATIN CALCIUM. [Concomitant]
     Active Substance: ATORVASTATIN CALCIUM

REACTIONS (2)
  - Drug interaction [Unknown]
  - No adverse event [Unknown]
